FAERS Safety Report 4345811-6 (Version None)
Quarter: 2004Q2

REPORT INFORMATION
  Report Type: 
  Country: None (occurrence: None)
  Receive Date: 20040424
  Receipt Date: 20040415
  Transmission Date: 20050107
  Serious: Yes (Hospitalization)
  Sender: FDA-Public Use
  Company Number: JP-MERCK-0404USA01880

PATIENT
  Age: 65 Year
  Sex: Male

DRUGS (1)
  1. PEPCID [Suspect]
     Route: 042
     Dates: end: 20040415

REACTIONS (1)
  - DEPRESSED LEVEL OF CONSCIOUSNESS [None]
